FAERS Safety Report 5063371-1 (Version None)
Quarter: 2006Q3

REPORT INFORMATION
  Report Type: 
  Country: None (occurrence: None)
  Receive Date: 20060727
  Receipt Date: 20051227
  Transmission Date: 20061208
  Serious: No
  Sender: FDA-Public Use
  Company Number: US-GLAXOSMITHKLINE-A0587021A

PATIENT
  Age: 73 Year
  Sex: Male

DRUGS (2)
  1. MYLERAN [Suspect]
     Dosage: 3TAB PER DAY
     Route: 048
  2. NO CONCURRENT MEDICATION [Concomitant]

REACTIONS (1)
  - LABORATORY TEST ABNORMAL [None]
